FAERS Safety Report 25911100 (Version 2)
Quarter: 2025Q4

REPORT INFORMATION
  Report Type: Report from Study
  Country: US (occurrence: US)
  Receive Date: 20251013
  Receipt Date: 20251210
  Transmission Date: 20260118
  Serious: Yes (Other)
  Sender: ABBVIE
  Company Number: US-ABBVIE-6498316

PATIENT
  Age: 59 Year
  Sex: Female
  Weight: 86 kg

DRUGS (13)
  1. SKYRIZI [Suspect]
     Active Substance: RISANKIZUMAB-RZAA
     Indication: Crohn^s disease
     Dosage: TIME INTERVAL: TOTAL: FORM STRENGTH : 360MG/2.4M, WEEK 12
     Route: 058
     Dates: start: 20250924, end: 20250924
  2. SKYRIZI [Suspect]
     Active Substance: RISANKIZUMAB-RZAA
     Indication: Crohn^s disease
     Dosage: TIME INTERVAL: TOTAL: WEEK 0
     Route: 042
     Dates: start: 20250602, end: 20250602
  3. SKYRIZI [Suspect]
     Active Substance: RISANKIZUMAB-RZAA
     Indication: Crohn^s disease
     Dosage: TIME INTERVAL: TOTAL: WEEK 4
     Route: 042
     Dates: start: 20250730, end: 20250730
  4. SKYRIZI [Suspect]
     Active Substance: RISANKIZUMAB-RZAA
     Indication: Crohn^s disease
     Dosage: TIME INTERVAL: TOTAL: WEEK 8
     Route: 042
     Dates: start: 20250827, end: 20250827
  5. CYANOCOBALAMIN [Concomitant]
     Active Substance: CYANOCOBALAMIN
     Indication: Product used for unknown indication
  6. ACIDOPHILUS [Concomitant]
     Active Substance: LACTOBACILLUS ACIDOPHILUS
     Indication: Product used for unknown indication
     Dates: start: 20220215
  7. ASPIRIN [Concomitant]
     Active Substance: ASPIRIN
     Indication: Product used for unknown indication
     Dosage: DELAYED RELEASE
     Dates: start: 20220215
  8. BUSPIRONE HYDROCHLORIDE [Concomitant]
     Active Substance: BUSPIRONE HYDROCHLORIDE
     Indication: Product used for unknown indication
     Dates: start: 20251024
  9. CYANOCOBALAMIN [Concomitant]
     Active Substance: CYANOCOBALAMIN
     Indication: Product used for unknown indication
     Dosage: INJECTION SOLUTION WEEKLY X 4 THEN MONTHLY
     Dates: start: 20160824
  10. DULOXETINE HYDROCHLORIDE [Concomitant]
     Active Substance: DULOXETINE HYDROCHLORIDE
     Indication: Product used for unknown indication
     Dosage: TIME INTERVAL: 0.33333333 DAYS: TAKE 3 CAPSULES DAILY, DELAYED RELEASE PARTICLES
     Dates: start: 20250120
  11. IRON [Concomitant]
     Active Substance: IRON
     Indication: Product used for unknown indication
     Dosage: TAKE 2 TABLET DAILY
     Dates: start: 20210818
  12. TYLENOL [Concomitant]
     Active Substance: ACETAMINOPHEN
     Indication: Product used for unknown indication
     Dosage: TAKE 1 TABLET EVERY 4 TO 6 HOURS AS NEEDED
  13. VITAMIN D [Concomitant]
     Active Substance: VITAMIN D NOS
     Indication: Product used for unknown indication
     Dosage: VITAMIN D 1000 UNIT TABS, TAKE 1 TABLET DAILY
     Dates: start: 20150210

REACTIONS (8)
  - Epistaxis [Recovered/Resolved]
  - Swelling of nose [Not Recovered/Not Resolved]
  - Abdominal pain lower [Unknown]
  - Blood pressure increased [Unknown]
  - Visual impairment [Unknown]
  - Arthropathy [Unknown]
  - Arthralgia [Unknown]
  - Depression [Unknown]

NARRATIVE: CASE EVENT DATE: 20250101
